FAERS Safety Report 9010588 (Version 2)
Quarter: 2013Q1

REPORT INFORMATION
  Report Type: Spontaneous
  Country: US (occurrence: US)
  Receive Date: 20130109
  Receipt Date: 20130116
  Transmission Date: 20140127
  Serious: Yes (Hospitalization, Other)
  Sender: FDA-Public Use
  Company Number: US-JNJFOC-20130102247

PATIENT
  Age: 74 Year
  Sex: Male
  Weight: 74.84 kg

DRUGS (2)
  1. TYLENOL ARTHRITIS PAIN ER [Suspect]
     Route: 048
  2. TYLENOL ARTHRITIS PAIN ER [Suspect]
     Indication: PAIN
     Dosage: 650MG/TAB, TWICE A DAY, SOMETIMES THREE
     Route: 048
     Dates: start: 20100101, end: 20130107

REACTIONS (3)
  - Renal failure [Recovering/Resolving]
  - Hospitalisation [Recovering/Resolving]
  - Intentional drug misuse [Unknown]
